FAERS Safety Report 12229595 (Version 1)
Quarter: 2016Q1

REPORT INFORMATION
  Report Type: Spontaneous
  Country: US (occurrence: None)
  Receive Date: 20160331
  Receipt Date: 20160331
  Transmission Date: 20160526
  Serious: Yes (Other)
  Sender: FDA-Public Use
  Company Number: None

PATIENT
  Age: 72 Year
  Sex: Female
  Weight: 94.35 kg

DRUGS (15)
  1. LISINOPRYL HCTZ [Concomitant]
  2. NIACIN. [Concomitant]
     Active Substance: NIACIN
  3. PROPRANOLOL [Concomitant]
     Active Substance: PROPRANOLOL\PROPRANOLOL HYDROCHLORIDE
  4. RED YEAST RICE [Concomitant]
     Active Substance: DIETARY SUPPLEMENT
  5. GADOLINIUM [Suspect]
     Active Substance: GADOLINIUM
     Indication: NUCLEAR MAGNETIC RESONANCE IMAGING
     Route: 042
     Dates: start: 20160329, end: 20160329
  6. METFORMIN [Concomitant]
     Active Substance: METFORMIN HYDROCHLORIDE
  7. GLIPIZIDE. [Concomitant]
     Active Substance: GLIPIZIDE
  8. MULTI-VITAMINS [Concomitant]
  9. BLOOD GLUCOSE MONITOR [Concomitant]
  10. PRIMIDONE. [Concomitant]
     Active Substance: PRIMIDONE
  11. ASPIRIN. [Concomitant]
     Active Substance: ASPIRIN
  12. GADOLINIUM [Suspect]
     Active Substance: GADOLINIUM
     Indication: DEEP BRAIN STIMULATION
     Route: 042
     Dates: start: 20160329, end: 20160329
  13. GADOLINIUM [Suspect]
     Active Substance: GADOLINIUM
     Indication: ESSENTIAL TREMOR
     Route: 042
     Dates: start: 20160329, end: 20160329
  14. BP MONITOR [Concomitant]
  15. VITAMIN D [Concomitant]
     Active Substance: CHOLECALCIFEROL

REACTIONS (4)
  - Erythema [None]
  - Contrast media reaction [None]
  - Local swelling [None]
  - Swelling face [None]

NARRATIVE: CASE EVENT DATE: 20160329
